FAERS Safety Report 11547456 (Version 1)
Quarter: 2015Q3

REPORT INFORMATION
  Report Type: Spontaneous
  Country: US (occurrence: US)
  Receive Date: 20150924
  Receipt Date: 20150924
  Transmission Date: 20151125
  Serious: No
  Sender: FDA-Public Use
  Company Number: US-BAYER-2015-423474

PATIENT
  Age: 77 Year
  Sex: Female
  Weight: 43.84 kg

DRUGS (2)
  1. ALEVE [Suspect]
     Active Substance: NAPROXEN SODIUM
     Indication: POST HERPETIC NEURALGIA
     Dosage: 2 DF, BID
     Route: 048
     Dates: start: 20150910
  2. CENTRUM [MINERALS NOS,VITAMINS NOS] [Concomitant]

REACTIONS (3)
  - Product use issue [Unknown]
  - Abdominal pain upper [Recovered/Resolved]
  - Product use issue [Not Recovered/Not Resolved]

NARRATIVE: CASE EVENT DATE: 20150910
